FAERS Safety Report 25042184 (Version 1)
Quarter: 2025Q1

REPORT INFORMATION
  Report Type: Spontaneous
  Country: FR (occurrence: FR)
  Receive Date: 20250305
  Receipt Date: 20250305
  Transmission Date: 20250408
  Serious: Yes (Hospitalization)
  Sender: MYLAN
  Company Number: None

PATIENT
  Age: 91 Year
  Sex: Female

DRUGS (4)
  1. CELECOXIB [Suspect]
     Active Substance: CELECOXIB
     Indication: Product used for unknown indication
     Dates: start: 20250208, end: 20250214
  2. CELECOXIB [Suspect]
     Active Substance: CELECOXIB
     Route: 048
     Dates: start: 20250208, end: 20250214
  3. CELECOXIB [Suspect]
     Active Substance: CELECOXIB
     Route: 048
     Dates: start: 20250208, end: 20250214
  4. CELECOXIB [Suspect]
     Active Substance: CELECOXIB
     Dates: start: 20250208, end: 20250214

REACTIONS (3)
  - Loss of consciousness [Recovered/Resolved]
  - Cardiac failure [Recovered/Resolved]
  - Contraindicated product administered [Recovered/Resolved]

NARRATIVE: CASE EVENT DATE: 20250208
